FAERS Safety Report 19020424 (Version 1)
Quarter: 2021Q1

REPORT INFORMATION
  Report Type: Spontaneous
  Country: US (occurrence: US)
  Receive Date: 20210317
  Receipt Date: 20210317
  Transmission Date: 20210420
  Serious: Yes (Death, Hospitalization, Other)
  Sender: FDA-Public Use
  Company Number: US-UPSHER-SMITH LABORATORIES, LLC-2021USL00229

PATIENT
  Sex: Male

DRUGS (2)
  1. UNSPECIFIED MEDICATIONS [Suspect]
     Active Substance: UNSPECIFIED INGREDIENT
     Indication: PULMONARY TOXICITY
     Dosage: UNK
     Dates: start: 2018, end: 2018
  2. AMIODARONE HYDROCHLORIDE. [Suspect]
     Active Substance: AMIODARONE HYDROCHLORIDE
     Indication: ATRIAL FIBRILLATION
     Dosage: UNK
     Route: 048
     Dates: start: 201201

REACTIONS (15)
  - Respiratory failure [Fatal]
  - Thyroid disorder [Fatal]
  - Pneumonia [Unknown]
  - Confusional state [Unknown]
  - Myxoedema coma [Unknown]
  - Asthenia [Unknown]
  - Unevaluable event [Unknown]
  - Off label use [Unknown]
  - Cardiac arrest [Unknown]
  - Hypothyroidism [Unknown]
  - Hallucination [Unknown]
  - Pulmonary toxicity [Fatal]
  - Nephropathy [Unknown]
  - Anxiety [Unknown]
  - Gait disturbance [Unknown]

NARRATIVE: CASE EVENT DATE: 201201
